FAERS Safety Report 5989552-8 (Version None)
Quarter: 2008Q4

REPORT INFORMATION
  Report Type: 
  Country: None (occurrence: None)
  Receive Date: 20081208
  Receipt Date: 20081201
  Transmission Date: 20090506
  Serious: No
  Sender: FDA-Public Use
  Company Number: US025111

PATIENT
  Age: 15 Year
  Sex: Male
  Weight: 59.4212 kg

DRUGS (8)
  1. PROVIGIL [Suspect]
     Indication: FATIGUE
     Dosage: 50 MG QD ORAL
     Route: 048
     Dates: start: 20081114, end: 20081114
  2. PROVIGIL [Suspect]
     Indication: FATIGUE
     Dosage: 100 MG QD ORAL
     Route: 048
     Dates: start: 20081115, end: 20081128
  3. PROAMATINE [Concomitant]
  4. PRILOSEC [Concomitant]
  5. FLORINEF [Concomitant]
  6. MESTINON [Concomitant]
  7. POTASSIUM CHLORIDE [Concomitant]
  8. SECTRAL [Concomitant]

REACTIONS (3)
  - ERYTHEMA [None]
  - PRURITUS [None]
  - RASH PAPULAR [None]
